FAERS Safety Report 4354282-5 (Version None)
Quarter: 2004Q2

REPORT INFORMATION
  Report Type: 
  Country: None (occurrence: None)
  Receive Date: 20040503
  Receipt Date: 20040420
  Transmission Date: 20050107
  Serious: No
  Sender: FDA-Public Use
  Company Number: A01200401930

PATIENT
  Sex: Female

DRUGS (1)
  1. DANAZOL [Suspect]
     Dates: start: 19920101, end: 20040101

REACTIONS (1)
  - GASTRECTOMY [None]
